FAERS Safety Report 18623482 (Version 1)
Quarter: 2020Q4

REPORT INFORMATION
  Report Type: Spontaneous
  Country: US (occurrence: US)
  Receive Date: 20201216
  Receipt Date: 20201216
  Transmission Date: 20210114
  Serious: Yes (Hospitalization)
  Sender: FDA-Public Use
  Company Number: None

PATIENT
  Age: 49 Year
  Sex: Female

DRUGS (1)
  1. CAPECITABINE. [Suspect]
     Active Substance: CAPECITABINE
     Indication: BREAST CANCER FEMALE
     Route: 048
     Dates: start: 20201127

REACTIONS (7)
  - Dehydration [None]
  - Headache [None]
  - Gastric disorder [None]
  - Vomiting [None]
  - Illness [None]
  - Dysstasia [None]
  - Diarrhoea [None]

NARRATIVE: CASE EVENT DATE: 20201129
